FAERS Safety Report 21657226 (Version 1)
Quarter: 2022Q4

REPORT INFORMATION
  Report Type: Spontaneous
  Country: DE (occurrence: DE)
  Receive Date: 20221129
  Receipt Date: 20221129
  Transmission Date: 20230113
  Serious: Yes (Other)
  Sender: FDA-Public Use
  Company Number: DE-002147023-NVSC2022DE215311

PATIENT
  Age: 55 Year
  Sex: Male

DRUGS (2)
  1. CLINDAMYCIN [Suspect]
     Active Substance: CLINDAMYCIN
     Indication: Necrotising fasciitis
     Dosage: UNK
     Route: 042
  2. MEROPENEM [Suspect]
     Active Substance: MEROPENEM
     Indication: Necrotising fasciitis
     Dosage: UNK
     Route: 042

REACTIONS (3)
  - Necrotising fasciitis [Unknown]
  - Condition aggravated [Unknown]
  - Drug ineffective [Unknown]
